FAERS Safety Report 21917019 (Version 1)
Quarter: 2023Q1

REPORT INFORMATION
  Report Type: Report from Study
  Country: None (occurrence: BR)
  Receive Date: 20230126
  Receipt Date: 20230126
  Transmission Date: 20230418
  Serious: Yes (Death, Disabling, Other)
  Sender: FDA-Public Use
  Company Number: BR-AKCEA THERAPEUTICS, INC.-2022IS004444

PATIENT
  Age: 52 Year
  Sex: Male
  Weight: 50.136 kg

DRUGS (7)
  1. TEGSEDI [Suspect]
     Active Substance: INOTERSEN SODIUM
     Indication: Hereditary neuropathic amyloidosis
     Route: 058
     Dates: start: 201512
  2. DEVICE [Suspect]
     Active Substance: DEVICE
  3. TEGSEDI [Suspect]
     Active Substance: INOTERSEN SODIUM
     Route: 058
  4. PREGABALIN [Concomitant]
     Active Substance: PREGABALIN
     Route: 065
     Dates: start: 201309
  5. OMEPRAZOLE [Concomitant]
     Active Substance: OMEPRAZOLE
     Route: 065
     Dates: start: 201010
  6. CLONAZEPAM [Concomitant]
     Active Substance: CLONAZEPAM
     Route: 065
     Dates: start: 201010
  7. MACRODANTIN [Concomitant]
     Active Substance: NITROFURANTOIN
     Route: 065
     Dates: start: 201206

REACTIONS (21)
  - Acute pulmonary oedema [Fatal]
  - Hypertrophic cardiomyopathy [Fatal]
  - Acute myocardial infarction [Fatal]
  - Pulmonary infarction [Fatal]
  - Disease progression [Fatal]
  - Cardiac failure [Unknown]
  - Renal failure [Unknown]
  - Cachexia [Unknown]
  - Arrhythmia [Unknown]
  - Lenticular opacities [Unknown]
  - Blood pressure decreased [Unknown]
  - Injury [Unknown]
  - Motor dysfunction [Unknown]
  - Sensory loss [Unknown]
  - Atrophy [Unknown]
  - Burning sensation [Unknown]
  - Diarrhoea [Unknown]
  - Vomiting [Unknown]
  - Visual acuity reduced [Unknown]
  - Incontinence [Unknown]
  - Physical disability [Unknown]

NARRATIVE: CASE EVENT DATE: 20221206
